FAERS Safety Report 7919050-3 (Version None)
Quarter: 2011Q4

REPORT INFORMATION
  Report Type: 
  Country: None (occurrence: None)
  Receive Date: 20111116
  Receipt Date: 20111107
  Transmission Date: 20120403
  Serious: Yes (Other)
  Sender: FDA-Public Use
  Company Number: CA-ASTRAZENECA-2011SE67288

PATIENT
  Age: 78 Year
  Sex: Male

DRUGS (3)
  1. CRESTOR [Suspect]
     Route: 048
  2. TYLENOL W/ CODEINE NO. 3 [Concomitant]
  3. ACETAMINOPHEN [Concomitant]

REACTIONS (7)
  - BALANCE DISORDER [None]
  - ARTHRALGIA [None]
  - FATIGUE [None]
  - BACK PAIN [None]
  - PAIN IN EXTREMITY [None]
  - MYALGIA [None]
  - GAIT DISTURBANCE [None]
